FAERS Safety Report 23771699 (Version 1)
Quarter: 2024Q2

REPORT INFORMATION
  Report Type: Spontaneous
  Country: US (occurrence: US)
  Receive Date: 20240423
  Receipt Date: 20240423
  Transmission Date: 20240715
  Serious: No
  Sender: FDA-Public Use
  Company Number: US-Accord-357529

PATIENT
  Sex: Female
  Weight: 74.84 kg

DRUGS (1)
  1. SIMVASTATIN [Suspect]
     Active Substance: SIMVASTATIN
     Indication: Blood cholesterol
     Dosage: STRENGTH: 10 MG; PILL
     Route: 048
     Dates: start: 2021

REACTIONS (6)
  - Pollakiuria [Unknown]
  - Product substitution issue [Unknown]
  - Recalled product [Unknown]
  - Treatment noncompliance [Unknown]
  - Head discomfort [Not Recovered/Not Resolved]
  - Body height decreased [Not Recovered/Not Resolved]
